FAERS Safety Report 19750221 (Version 3)
Quarter: 2021Q3

REPORT INFORMATION
  Report Type: Report from Study
  Country: US (occurrence: US)
  Receive Date: 20210826
  Receipt Date: 20210928
  Transmission Date: 20211014
  Serious: No
  Sender: FDA-Public Use
  Company Number: NVSC2021US192778

PATIENT
  Sex: Female

DRUGS (1)
  1. PIQRAY [Suspect]
     Active Substance: ALPELISIB
     Indication: BREAST CANCER
     Route: 065

REACTIONS (9)
  - Fatigue [Unknown]
  - Eating disorder [Unknown]
  - Asthenia [Unknown]
  - Pruritus [Unknown]
  - Blood glucose increased [Unknown]
  - Stomatitis [Unknown]
  - Blood creatinine increased [Unknown]
  - Dry skin [Unknown]
  - Oral pain [Unknown]
